FAERS Safety Report 8919151 (Version 2)
Quarter: 2012Q4

REPORT INFORMATION
  Report Type: 
  Country: JP (occurrence: JP)
  Receive Date: 20121121
  Receipt Date: 20121221
  Transmission Date: 20130627
  Serious: Yes (Disabling, Other)
  Sender: FDA-Public Use
  Company Number: JP-SANOFI-AVENTIS-2012SA074603

PATIENT
  Age: 80 Year
  Sex: Female
  Weight: 49 kg

DRUGS (13)
  1. PLAVIX [Suspect]
     Indication: ACUTE MYOCARDIAL INFARCTION
     Route: 048
     Dates: start: 20111025, end: 20120323
  2. ASPIRIN [Concomitant]
  3. BAYASPIRIN [Concomitant]
     Indication: MYOCARDIAL INFARCTION
     Route: 048
     Dates: start: 20111025
  4. BAYASPIRIN [Concomitant]
     Indication: MYOCARDIAL INFARCTION
     Dates: start: 20120323
  5. TAKEPRON OD [Concomitant]
     Indication: HAEMORRHAGE OF DIGESTIVE TRACT
     Route: 048
     Dates: start: 201110
  6. SPIRONOLACTONE [Concomitant]
     Indication: CARDIAC FAILURE
     Route: 048
     Dates: start: 201110
  7. ARTIST [Concomitant]
     Indication: CARDIAC FAILURE
     Route: 048
     Dates: start: 201110
  8. ARTIST [Concomitant]
     Indication: HYPERTENSION
     Route: 048
     Dates: start: 201110
  9. OLMETEC [Concomitant]
     Indication: HYPERTENSION
     Route: 048
     Dates: start: 201110
  10. NIKORANMART [Concomitant]
     Indication: ANGINA PECTORIS
     Route: 048
     Dates: start: 201110
  11. ADALAT CR [Concomitant]
     Route: 048
     Dates: start: 201110
  12. MICARDIS [Concomitant]
     Dates: start: 20120323
  13. PIETENALE [Concomitant]
     Dates: start: 20120606

REACTIONS (5)
  - Renal impairment [Recovering/Resolving]
  - Dermatitis exfoliative [Recovered/Resolved with Sequelae]
  - Alopecia [Recovered/Resolved with Sequelae]
  - Pruritus [Unknown]
  - Eosinophilia [Recovering/Resolving]
